FAERS Safety Report 4577398-7 (Version None)
Quarter: 2005Q1

REPORT INFORMATION
  Report Type: 
  Country: None (occurrence: None)
  Receive Date: 20050210
  Receipt Date: 20041206
  Transmission Date: 20050727
  Serious: Yes (Life-Threatening, Hospitalization, Other)
  Sender: FDA-Public Use
  Company Number: JP-NOVOPROD-240973

PATIENT
  Age: 83 Year
  Sex: Female
  Weight: 40 kg

DRUGS (9)
  1. NOVORAPID 30 MIX CHU FLEXPEN [Suspect]
     Indication: INSULIN-REQUIRING TYPE II DIABETES MELLITUS
     Dosage: 14 IU, QD
     Route: 058
     Dates: start: 20040901, end: 20041102
  2. NOVORAPID 30 MIX CHU FLEXPEN [Suspect]
     Dosage: 20 IU, QD
     Route: 058
     Dates: start: 20041102, end: 20041106
  3. HUMULIN R [Concomitant]
     Indication: INSULIN-REQUIRING TYPE II DIABETES MELLITUS
     Dosage: 60 IU, QD
     Route: 058
     Dates: start: 20041106, end: 20041106
  4. HUMULIN R [Concomitant]
     Dosage: 200 IU, QD
     Route: 042
     Dates: start: 20041106, end: 20041106
  5. NOVOLIN R CHU [Concomitant]
     Indication: INSULIN-REQUIRING TYPE II DIABETES MELLITUS
     Dosage: 115 IU, QD
     Route: 042
     Dates: start: 20041107, end: 20041108
  6. LANTUS [Concomitant]
     Indication: INSULIN-REQUIRING TYPE II DIABETES MELLITUS
     Dosage: 10 IU, QD
     Route: 058
     Dates: start: 20041109, end: 20041109
  7. NOVORAPID CHU FLEXPEN [Concomitant]
     Indication: INSULIN-REQUIRING TYPE II DIABETES MELLITUS
     Dosage: 28 IU, QD
     Route: 058
     Dates: start: 20041112
  8. HUMALOG [Concomitant]
     Indication: INSULIN-REQUIRING TYPE II DIABETES MELLITUS
     Dosage: UNK, UNK
     Dates: start: 20041109, end: 20041112
  9. AMARYL [Concomitant]
     Indication: INSULIN-REQUIRING TYPE II DIABETES MELLITUS
     Route: 048
     Dates: start: 20041013, end: 20041018

REACTIONS (3)
  - BLOOD PRESSURE SYSTOLIC DECREASED [None]
  - DIABETIC HYPERGLYCAEMIC COMA [None]
  - MYOCARDIAL INFARCTION [None]
